FAERS Safety Report 7129187-7 (Version None)
Quarter: 2010Q4

REPORT INFORMATION
  Report Type: 
  Country: None (occurrence: None)
  Receive Date: 20101130
  Receipt Date: 20101123
  Transmission Date: 20110411
  Serious: Yes (Other)
  Sender: FDA-Public Use
  Company Number: ES-MERCK-1011ESP00025

PATIENT
  Age: 50 Year
  Sex: Female

DRUGS (2)
  1. SINGULAIR [Suspect]
     Indication: ASTHMA
     Route: 048
     Dates: start: 20000101
  2. SERETIDE [Concomitant]
     Indication: ASTHMA
     Route: 055
     Dates: start: 20000101

REACTIONS (1)
  - ALLERGIC GRANULOMATOUS ANGIITIS [None]
